FAERS Safety Report 6687059-6 (Version None)
Quarter: 2010Q2

REPORT INFORMATION
  Report Type: 
  Country: None (occurrence: None)
  Receive Date: 20100419
  Receipt Date: 20100409
  Transmission Date: 20101027
  Serious: Yes (Other)
  Sender: FDA-Public Use
  Company Number: US-PFIZER INC-2010046108

PATIENT
  Sex: Male
  Weight: 79.4 kg

DRUGS (3)
  1. LIPITOR [Suspect]
     Indication: BLOOD CHOLESTEROL INCREASED
     Dosage: UNK
     Route: 048
  2. FLUNISOLIDE [Concomitant]
     Indication: HYPERSENSITIVITY
     Dosage: UNK
     Route: 045
  3. OMEGA-3 MARINE TRIGLYCERIDES [Concomitant]
     Indication: BLOOD TRIGLYCERIDES
     Dosage: 1 G, 4X/DAY
     Route: 048
     Dates: start: 20091201

REACTIONS (4)
  - ALANINE AMINOTRANSFERASE INCREASED [None]
  - BACK INJURY [None]
  - INFLAMMATION [None]
  - PROSTATIC SPECIFIC ANTIGEN INCREASED [None]
